FAERS Safety Report 9675234 (Version 4)
Quarter: 2014Q1

REPORT INFORMATION
  Report Type: Spontaneous
  Country: US (occurrence: US)
  Receive Date: 20131107
  Receipt Date: 20140102
  Transmission Date: 20141002
  Serious: Yes (Other)
  Sender: FDA-Public Use
  Company Number: US-PFIZER INC-2013314921

PATIENT
  Age: 67 Year
  Sex: Female

DRUGS (11)
  1. XELJANZ [Suspect]
     Indication: RHEUMATOID ARTHRITIS
     Dosage: 5 MG, 2X/DAY
     Route: 048
     Dates: start: 20130821, end: 20131227
  2. ZYRTEC [Concomitant]
     Dosage: UNK
  3. BISOPROLOL [Concomitant]
     Dosage: UNK
  4. CO-Q-10 [Concomitant]
     Dosage: UNK
  5. CALCIUM [Concomitant]
     Dosage: UNK
  6. MAGNESIUM [Concomitant]
     Dosage: UNK
  7. VIT D3 [Concomitant]
     Dosage: UNK
  8. IRON [Concomitant]
     Dosage: UNK
  9. FERRITIN [Concomitant]
     Dosage: UNK
  10. B50 COMPLEX [Concomitant]
  11. THERAMINE [Concomitant]
     Dosage: UNK

REACTIONS (4)
  - Rheumatoid arthritis [Not Recovered/Not Resolved]
  - Furuncle [Not Recovered/Not Resolved]
  - Herpes virus infection [Not Recovered/Not Resolved]
  - Sinus disorder [Not Recovered/Not Resolved]
